FAERS Safety Report 10924398 (Version 1)
Quarter: 2015Q1

REPORT INFORMATION
  Report Type: Spontaneous
  Country: US (occurrence: None)
  Receive Date: 20150203
  Receipt Date: 20150203
  Transmission Date: 20150721
  Serious: Yes (Hospitalization)
  Sender: FDA-Public Use
  Company Number: TPA2011A02988

PATIENT
  Age: 53 Year
  Sex: Female
  Weight: 67.59 kg

DRUGS (14)
  1. ADVAIR DISKUS [Concomitant]
     Active Substance: FLUTICASONE PROPIONATE\SALMETEROL XINAFOATE
  2. NORCO (PARACETAMOL, HYDROCODONE BITARTRATE) [Concomitant]
  3. BENTYL (DICYCLOVERINE HYDROCHLORIDE) [Concomitant]
  4. XANAX [Concomitant]
     Active Substance: ALPRAZOLAM
  5. CARAFATE (SUCRALFATE) [Concomitant]
  6. COREG [Concomitant]
     Active Substance: CARVEDILOL
  7. DEXILANT [Suspect]
     Active Substance: DEXLANSOPRAZOLE
     Indication: IRRITABLE BOWEL SYNDROME
     Route: 048
     Dates: start: 201103
  8. DEXILANT [Suspect]
     Active Substance: DEXLANSOPRAZOLE
     Indication: GASTROOESOPHAGEAL REFLUX DISEASE
     Route: 048
     Dates: start: 201103
  9. CEPHADYN (BUTALBITAL, PARACETAMOL) [Concomitant]
  10. SPIRIVA (TIOTROPIUM BROMIDE) [Concomitant]
  11. HCTZ (HYDROCHLOROTHIAZIDE) [Concomitant]
     Active Substance: HYDROCHLOROTHIAZIDE
  12. ZOFRAN (ONDANSETRON HYDROCHLORIDE) [Concomitant]
  13. KEPPRA [Concomitant]
     Active Substance: LEVETIRACETAM
  14. ZOLOFT [Concomitant]
     Active Substance: SERTRALINE HYDROCHLORIDE

REACTIONS (3)
  - Dehydration [None]
  - Diarrhoea [None]
  - Vomiting [None]

NARRATIVE: CASE EVENT DATE: 201104
